FAERS Safety Report 25656765 (Version 1)
Quarter: 2025Q3

REPORT INFORMATION
  Report Type: Spontaneous
  Country: US (occurrence: US)
  Receive Date: 20250807
  Receipt Date: 20250807
  Transmission Date: 20251020
  Serious: No
  Sender: TEIKOKU
  Company Number: US-TPU-TPU-2025-00354

PATIENT
  Sex: Female

DRUGS (4)
  1. LIDOCAINE PATCH [Suspect]
     Active Substance: LIDOCAINE
     Indication: Arthritis
     Dates: start: 2024
  2. LIDOCAINE PATCH [Suspect]
     Active Substance: LIDOCAINE
  3. TYLENOL [Concomitant]
     Active Substance: ACETAMINOPHEN
  4. SALONPAS PAIN RELIEF [Concomitant]
     Active Substance: MENTHOL\METHYL SALICYLATE

REACTIONS (2)
  - Depression [Unknown]
  - Balance disorder [Unknown]

NARRATIVE: CASE EVENT DATE: 20250701
